FAERS Safety Report 20013765 (Version 1)
Quarter: 2021Q4

REPORT INFORMATION
  Report Type: Spontaneous
  Country: DE (occurrence: DE)
  Receive Date: 20211029
  Receipt Date: 20211029
  Transmission Date: 20220303
  Serious: Yes (Other)
  Sender: FDA-Public Use
  Company Number: DE-TAKEDA-2021TUS066287

PATIENT
  Sex: Male

DRUGS (1)
  1. ENTYVIO [Suspect]
     Active Substance: VEDOLIZUMAB
     Indication: Product used for unknown indication
     Dosage: 300 MILLIGRAM
     Route: 065
     Dates: start: 201811, end: 201812

REACTIONS (5)
  - Progressive multifocal leukoencephalopathy [Unknown]
  - Malaise [Unknown]
  - Tension headache [Unknown]
  - Peripheral coldness [Unknown]
  - Hyperhidrosis [Unknown]
